FAERS Safety Report 6449639-2 (Version None)
Quarter: 2009Q4

REPORT INFORMATION
  Report Type: 
  Country: None (occurrence: None)
  Receive Date: 20091120
  Receipt Date: 20091112
  Transmission Date: 20100525
  Serious: Yes (Hospitalization)
  Sender: FDA-Public Use
  Company Number: ES-ABBOTT-05P-144-0314899-01

PATIENT
  Sex: Male
  Weight: 69 kg

DRUGS (7)
  1. HUMIRA [Suspect]
     Indication: RHEUMATOID ARTHRITIS
     Route: 058
     Dates: start: 20050223
  2. HUMIRA [Suspect]
     Route: 058
     Dates: start: 20050615
  3. HUMIRA [Concomitant]
     Indication: RHEUMATOID ARTHRITIS
     Route: 058
     Dates: start: 20040401
  4. URBASON [Concomitant]
     Indication: ARTHRITIS
     Dates: start: 20020903
  5. ARAVA [Concomitant]
     Indication: ARTHRITIS
     Dates: start: 20020813, end: 20051018
  6. FROBEN [Concomitant]
     Indication: ARTHRITIS
     Dates: start: 20040810, end: 20050606
  7. DECA-DURABOLIN [Concomitant]
     Indication: OSTEOPOROSIS
     Dates: start: 20050222, end: 20050606

REACTIONS (1)
  - GASTRIC HAEMORRHAGE [None]
